FAERS Safety Report 7162347-8 (Version None)
Quarter: 2010Q4

REPORT INFORMATION
  Report Type: 
  Country: None (occurrence: None)
  Receive Date: 20101215
  Receipt Date: 20091016
  Transmission Date: 20110411
  Serious: Yes (Hospitalization)
  Sender: FDA-Public Use
  Company Number: NL-PFIZER INC-2009264750

PATIENT
  Age: 87 Year

DRUGS (17)
  1. LYRICA [Suspect]
     Dosage: 75 MG, UNK
     Dates: start: 20090721, end: 20090818
  2. METOPROLOL TARTRATE [Concomitant]
     Dosage: 100 MG, 1X/DAY
  3. METOCLOPRAMIDE HYDROCHLORIDE [Concomitant]
     Dosage: 10 MG, 4X/DAY
  4. MAALOX F [Concomitant]
     Dosage: 10 ML, 3X/DAY
  5. VIDISIC [Concomitant]
     Dosage: 1 GTT, 4X/DAY
  6. PERSANTIN [Concomitant]
     Dosage: 150 MG, 2X/DAY
  7. CALCICHEW [Concomitant]
     Dosage: 500 MG, 1X/DAY
  8. SPIRONOLACTONE [Concomitant]
     Dosage: 50 MG, 1X/DAY
  9. CALCICHEW-D3 [Concomitant]
     Dosage: UNK
  10. ACETYLSALICYLIC ACID [Concomitant]
     Dosage: 80 MG, 1X/DAY
  11. BETAHISTINE DIHYDROCHLORIDE [Concomitant]
     Dosage: 16 MG, 3X/DAY
  12. FUROSEMIDE [Concomitant]
     Dosage: 40 MG, 2X/DAY
  13. AMITRIPTYLINE HYDROCHLORIDE [Concomitant]
     Dosage: 10 MG, 1X/DAY
  14. OXAZEPAM [Concomitant]
     Dosage: 10 MG, AS NEEDED
  15. OMEPRAZOLE [Concomitant]
     Dosage: 40 MG, 2X/DAY
  16. LANOXIN [Concomitant]
     Dosage: 62.5 UG, 1X/DAY
  17. OXYCODONE HYDROCHLORIDE [Concomitant]
     Dosage: 5 MG, 2X/DAY

REACTIONS (3)
  - DIZZINESS [None]
  - FLUID RETENTION [None]
  - HEPATIC FUNCTION ABNORMAL [None]
